FAERS Safety Report 8796260 (Version 1)
Quarter: 2012Q4

REPORT INFORMATION
  Report Type: 
  Country: IT (occurrence: IT)
  Receive Date: 20120919
  Receipt Date: 20120919
  Transmission Date: 20130627
  Serious: Yes (Hospitalization)
  Sender: FDA-Public Use
  Company Number: IT-BRISTOL-MYERS SQUIBB COMPANY-16434938

PATIENT
  Age: 91 Year
  Sex: Female

DRUGS (1)
  1. SPRYCEL [Suspect]
     Indication: CHRONIC MYELOID LEUKAEMIA
     Dosage: inter on 26Mar12.resumed again and last dose-12Jul12
     Route: 048
     Dates: start: 20120104

REACTIONS (3)
  - Right ventricular failure [Recovering/Resolving]
  - Acute respiratory failure [Recovered/Resolved with Sequelae]
  - Pancytopenia [Recovering/Resolving]
